FAERS Safety Report 13708129 (Version 7)
Quarter: 2019Q2

REPORT INFORMATION
  Report Type: Spontaneous
  Country: US (occurrence: US)
  Receive Date: 20170630
  Receipt Date: 20190530
  Transmission Date: 20190711
  Serious: Yes (Hospitalization, Other)
  Sender: FDA-Public Use
  Company Number: US-PFIZER INC-2017284228

PATIENT
  Age: 86 Year
  Sex: Male

DRUGS (25)
  1. ASPIRIN 81 [Concomitant]
     Active Substance: ASPIRIN
     Indication: COAGULOPATHY
     Dosage: 81 MG, UNK (1/D-M/W/F ONLY-(BLOOD THINNER)
  2. MEGARED OMEGA 3 KRILL OIL [Concomitant]
     Indication: BLOOD CHOLESTEROL ABNORMAL
     Dosage: UNK (1/B-(CHOLEST. + TRI-GLYC.)-1/B)
  3. GLUCOSAMINE + CHONDROITIN [Concomitant]
     Dosage: 1500 MG, 1X/DAY (1500 MG- 1L)
  4. VITAMIN-B-COMPLEX STANDARD [Concomitant]
     Indication: ASTHENIA
     Dosage: UNK, 1X/DAY (1/B)
  5. ATORVASTATIN [Concomitant]
     Active Substance: ATORVASTATIN
     Indication: BLOOD CHOLESTEROL
     Dosage: 40 MG, 1X/DAY (1/PM)
  6. LEVOTHYROXINE. [Concomitant]
     Active Substance: LEVOTHYROXINE
     Dosage: 50 UG, ALTERNATE DAY (1/B+1/2 TAB-MWFSUN. (30 MIN. BEFORE B)
  7. MEGARED OMEGA 3 KRILL OIL [Concomitant]
     Indication: BLOOD TRIGLYCERIDES ABNORMAL
  8. LANTUS [Concomitant]
     Active Substance: INSULIN GLARGINE
     Indication: BLOOD INSULIN
     Dosage: 14 DF, 1X/DAY (14UNITS/D)
  9. MAGNESIUM [Concomitant]
     Active Substance: MAGNESIUM
     Indication: ASTHENIA
  10. LANTUS [Concomitant]
     Active Substance: INSULIN GLARGINE
     Indication: DIABETES MELLITUS
     Dosage: 20 DF, 1X/DAY (20 UNITS/BKFST
  11. VITAMIN-B-COMPLEX STANDARD [Concomitant]
     Indication: ANTIOXIDANT THERAPY
  12. VITAMIN C [Concomitant]
     Active Substance: ASCORBIC ACID
     Indication: IMMUNE SYSTEM DISORDER
     Dosage: 1000 MG, 1X/DAY (1/B)
  13. LYRICA [Suspect]
     Active Substance: PREGABALIN
     Indication: DIABETIC NEUROPATHY
     Dosage: UNK
     Route: 048
     Dates: start: 201704
  14. VITAMIN D3 [Concomitant]
     Active Substance: CHOLECALCIFEROL
     Indication: BONE DISORDER
     Dosage: 2000 IU, 1X/DAY (1/B)
  15. FUROSEMIDE. [Concomitant]
     Active Substance: FUROSEMIDE
     Indication: FLUID RETENTION
     Dosage: 40 MG, 1X/DAY (1/AM)
  16. SERTRALINE [Concomitant]
     Active Substance: SERTRALINE HYDROCHLORIDE
     Indication: DEPRESSION
     Dosage: 50 MG, UNK (1/2 AT /B-1/2/L)
  17. COENZYME Q10 [Concomitant]
     Active Substance: UBIDECARENONE
     Indication: CARDIAC DISORDER
     Dosage: 100 MG, 1X/DAY (1/B) (Q-10-100 MG CAPS)
  18. MAGNESIUM [Concomitant]
     Active Substance: MAGNESIUM
     Indication: NERVOUS SYSTEM DISORDER
     Dosage: 400 MG, 1X/DAY (400 MG-1/B)
  19. TRIPLE OMEGA COMPLEX 3-6-9 [Concomitant]
     Dosage: UNK, 1X/DAY (1/B)
  20. GLIPIZIDE. [Concomitant]
     Active Substance: GLIPIZIDE
     Indication: DIABETES MELLITUS
     Dosage: 20 MG, UNK (1/B, 1/L)
  21. LOSARTAN. [Concomitant]
     Active Substance: LOSARTAN
     Indication: BLOOD PRESSURE MEASUREMENT
     Dosage: UNK UNK, 1X/DAY(25 MG, 1/2 TAB/B)
  22. GLUCOSAMINE + CHONDROITIN [Concomitant]
     Indication: ARTHROPATHY
     Dosage: 1500 MG, 1X/DAY (1/B)
  23. LYRICA [Suspect]
     Active Substance: PREGABALIN
     Indication: NEUROPATHY PERIPHERAL
     Dosage: 100 MG, TWICE A DAY (AT BREAKFAST AND 100 MG AT DINNER)
     Dates: start: 2015
  24. FOLIC ACID. [Concomitant]
     Active Substance: FOLIC ACID
     Dosage: 800 MG, 1X/DAY (1/B)
  25. VITAMIN D3 [Concomitant]
     Active Substance: CHOLECALCIFEROL
     Indication: IMMUNE SYSTEM DISORDER

REACTIONS (6)
  - Polyneuropathy [Unknown]
  - Pain [Recovered/Resolved]
  - Paraesthesia [Recovered/Resolved]
  - Pruritus [Recovered/Resolved]
  - Pain in extremity [Unknown]
  - Discomfort [Recovered/Resolved]
